FAERS Safety Report 20349400 (Version 1)
Quarter: 2022Q1

REPORT INFORMATION
  Report Type: Spontaneous
  Country: US (occurrence: US)
  Receive Date: 20220119
  Receipt Date: 20220119
  Transmission Date: 20220423
  Serious: No
  Sender: FDA-Public Use
  Company Number: US-drreddys-SPO/USA/22/0145897

PATIENT
  Age: 17 Year
  Sex: Male

DRUGS (2)
  1. ACCUTANE [Suspect]
     Active Substance: ISOTRETINOIN
     Indication: Product used for unknown indication
     Dosage: RMA ISSUE DATE:  25/OCTOBER/2021 06:08:17 PM, 29/NOVEMBER/2021 04:56:44 PM
  2. ACCUTANE [Suspect]
     Active Substance: ISOTRETINOIN
     Dosage: RMA ISSUE DATE: 22/SEPTEMBER/2021 05:02:37 PM, 23/AUGUST/2021 04:19:55 PM, 21/JULY/2021 05:37:10 PM

REACTIONS (1)
  - Treatment noncompliance [Unknown]
